FAERS Safety Report 7125330-4 (Version None)
Quarter: 2010Q4

REPORT INFORMATION
  Report Type: 
  Country: None (occurrence: None)
  Receive Date: 20101129
  Receipt Date: 20101115
  Transmission Date: 20110411
  Serious: Yes (Hospitalization)
  Sender: FDA-Public Use
  Company Number: JP-ROCHE-634589

PATIENT
  Sex: Male
  Weight: 90 kg

DRUGS (8)
  1. AVASTIN [Suspect]
     Indication: RECTAL CANCER METASTATIC
     Dosage: STOP DATE: 2009
     Route: 041
     Dates: start: 20081107, end: 20090417
  2. ELPLAT [Suspect]
     Indication: RECTAL CANCER METASTATIC
     Route: 041
     Dates: start: 20080819, end: 20090417
  3. LEVOFOLINATE [Suspect]
     Indication: RECTAL CANCER METASTATIC
     Route: 041
     Dates: start: 20080819, end: 20090417
  4. FLUOROURACIL [Suspect]
     Indication: RECTAL CANCER METASTATIC
     Route: 040
     Dates: start: 20080819, end: 20090417
  5. FLUOROURACIL [Suspect]
     Route: 040
     Dates: start: 20080819, end: 20090417
  6. NORVASC [Concomitant]
     Route: 048
  7. DECADRON [Concomitant]
     Route: 042
     Dates: start: 20080819, end: 20090417
  8. ONDANSETRON [Concomitant]
     Route: 042
     Dates: start: 20080819, end: 20090417

REACTIONS (10)
  - ANAEMIA [None]
  - DUODENAL ULCER HAEMORRHAGE [None]
  - EPISTAXIS [None]
  - GASTRITIS [None]
  - GINGIVAL BLEEDING [None]
  - HAEMATOCOELE [None]
  - HELICOBACTER INFECTION [None]
  - IDIOPATHIC THROMBOCYTOPENIC PURPURA [None]
  - MALAISE [None]
  - MYELODYSPLASTIC SYNDROME [None]
